FAERS Safety Report 6661792-4 (Version None)
Quarter: 2010Q1

REPORT INFORMATION
  Report Type: 
  Country: None (occurrence: None)
  Receive Date: 20100331
  Receipt Date: 20090625
  Transmission Date: 20100710
  Serious: No
  Sender: FDA-Public Use
  Company Number: US-BRISTOL-MYERS SQUIBB COMPANY-14681464

PATIENT
  Sex: Male

DRUGS (1)
  1. ERBITUX [Suspect]
     Indication: COLORECTAL CANCER
     Dosage: 1ST DOSE ON EITHER 06/09/2009 OR 06/10/2009
     Dates: start: 20090601, end: 20090601

REACTIONS (3)
  - PRURITUS GENERALISED [None]
  - SKIN DISCOLOURATION [None]
  - URTICARIA [None]
